FAERS Safety Report 23274174 (Version 1)
Quarter: 2023Q4

REPORT INFORMATION
  Report Type: Spontaneous
  Country: DE (occurrence: DE)
  Receive Date: 20231208
  Receipt Date: 20231208
  Transmission Date: 20240110
  Serious: Yes (Life-Threatening, Hospitalization)
  Sender: FDA-Public Use
  Company Number: DE-drreddys-LIT/GER/23/0188005

PATIENT
  Age: 27 Year
  Sex: Female

DRUGS (4)
  1. BORTEZOMIB [Suspect]
     Active Substance: BORTEZOMIB
     Indication: Chronic active Epstein-Barr virus infection
     Dosage: ON DAYS 1, 4, 8, AND 11
  2. PREDNISOLONE [Suspect]
     Active Substance: PREDNISOLONE
     Indication: Chronic active Epstein-Barr virus infection
     Dosage: HIGH-DOSE STEROID THERAPY
  3. GANCICLOVIR [Suspect]
     Active Substance: GANCICLOVIR
     Indication: Chronic active Epstein-Barr virus infection
  4. RITUXIMAB [Suspect]
     Active Substance: RITUXIMAB
     Indication: Chronic active Epstein-Barr virus infection

REACTIONS (3)
  - Epstein-Barr virus infection [Unknown]
  - Condition aggravated [Unknown]
  - Drug ineffective for unapproved indication [Unknown]
